FAERS Safety Report 9379319 (Version 2)
Quarter: 2013Q2

REPORT INFORMATION
  Report Type: Spontaneous
  Country: DE (occurrence: None)
  Receive Date: 20130419
  Receipt Date: 20130624
  Transmission Date: 20140414
  Serious: Yes (Death)
  Sender: FDA-Public Use
  Company Number: 1303-365

PATIENT
  Age: 87 Year
  Sex: Male

DRUGS (2)
  1. EYLEA [Suspect]
     Indication: MACULAR DEGENERATION
     Dates: start: 20130109, end: 20130109
  2. MARCUMAR(PHENPROCOUMON) [Concomitant]

REACTIONS (2)
  - Myocardial infarction [None]
  - Cerebrovascular accident [None]
